FAERS Safety Report 25760538 (Version 1)
Quarter: 2025Q3

REPORT INFORMATION
  Report Type: Spontaneous
  Country: US (occurrence: None)
  Receive Date: 20250903
  Receipt Date: 20250903
  Transmission Date: 20251021
  Serious: Yes (Hospitalization)
  Sender: FDA-CTU
  Company Number: None

PATIENT
  Age: 17 Year
  Sex: Female
  Weight: 89.4 kg

DRUGS (10)
  1. PAZOPANIB [Suspect]
     Active Substance: PAZOPANIB
     Indication: Bone cancer
     Dosage: 800 MG DAILY ORAL
     Route: 048
     Dates: start: 20240919, end: 20250822
  2. CELECOXIB [Concomitant]
     Active Substance: CELECOXIB
  3. CYCLOBENZAPRINE [Concomitant]
     Active Substance: CYCLOBENZAPRINE
  4. DULOXETINE [Concomitant]
     Active Substance: DULOXETINE
  5. LEVOTHYROXINE [Concomitant]
     Active Substance: LEVOTHYROXINE
  6. LISINOPRIL [Concomitant]
     Active Substance: LISINOPRIL
  7. NORETHINDRNE [Concomitant]
  8. PREGABALIN [Concomitant]
     Active Substance: PREGABALIN
  9. RIZATRIPTAN [Concomitant]
     Active Substance: RIZATRIPTAN
  10. TRAZODONE [Concomitant]
     Active Substance: TRAZODONE HYDROCHLORIDE

REACTIONS (1)
  - Pneumothorax [None]

NARRATIVE: CASE EVENT DATE: 20250822
